FAERS Safety Report 4829538-X (Version None)
Quarter: 2005Q4

REPORT INFORMATION
  Report Type: 
  Country: None (occurrence: None)
  Receive Date: 20051116
  Receipt Date: 20050901
  Transmission Date: 20060501
  Serious: Yes (Hospitalization)
  Sender: FDA-Public Use
  Company Number: 2005UW13123

PATIENT
  Age: 38 Year
  Sex: Female
  Weight: 145.5 kg

DRUGS (6)
  1. SEROQUEL [Suspect]
     Indication: BIPOLAR I DISORDER
     Route: 048
     Dates: start: 20050819, end: 20050825
  2. SEROQUEL [Suspect]
     Indication: DEPRESSION
     Route: 048
     Dates: start: 20050819, end: 20050825
  3. SEROQUEL [Suspect]
     Route: 048
     Dates: start: 20050826
  4. SEROQUEL [Suspect]
     Route: 048
     Dates: start: 20050826
  5. WELLBUTRIN [Suspect]
     Indication: MOOD ALTERED
     Route: 048
     Dates: start: 20050819, end: 20050830
  6. DEPAKOTE [Suspect]
     Route: 048
     Dates: start: 20050819, end: 20050830

REACTIONS (16)
  - ACUTE RESPIRATORY FAILURE [None]
  - CARDIAC DISORDER [None]
  - CARDIOMEGALY [None]
  - COR PULMONALE [None]
  - DISORIENTATION [None]
  - EYE SWELLING [None]
  - HYPERTENSION [None]
  - MOVEMENT DISORDER [None]
  - OEDEMA PERIPHERAL [None]
  - PICKWICKIAN SYNDROME [None]
  - PULMONARY OEDEMA [None]
  - RESPIRATORY ACIDOSIS [None]
  - RESPIRATORY FAILURE [None]
  - SLEEP APNOEA SYNDROME [None]
  - SOMNOLENCE [None]
  - TROPONIN INCREASED [None]
